FAERS Safety Report 24285297 (Version 3)
Quarter: 2025Q1

REPORT INFORMATION
  Report Type: Report from Study
  Country: JP (occurrence: JP)
  Receive Date: 20240905
  Receipt Date: 20250228
  Transmission Date: 20250409
  Serious: Yes (Life-Threatening, Hospitalization)
  Sender: EISAI
  Company Number: JP-Eisai-202303594_LEN-EC_P_1

PATIENT
  Age: 65 Year
  Sex: Female
  Weight: 49 kg

DRUGS (41)
  1. LENVIMA [Suspect]
     Active Substance: LENVATINIB
     Indication: Endometrial cancer
     Route: 048
     Dates: start: 20230508, end: 20230518
  2. LENVIMA [Suspect]
     Active Substance: LENVATINIB
     Route: 048
     Dates: start: 20230530, end: 20230530
  3. KEYTRUDA [Suspect]
     Active Substance: PEMBROLIZUMAB
     Indication: Endometrial cancer
     Route: 041
     Dates: start: 20230508, end: 20230529
  4. METOCLOPRAMIDE [Concomitant]
     Active Substance: METOCLOPRAMIDE
     Indication: Product used for unknown indication
  5. METOCLOPRAMIDE [Concomitant]
     Active Substance: METOCLOPRAMIDE
  6. METOCLOPRAMIDE [Concomitant]
     Active Substance: METOCLOPRAMIDE
  7. ROSUVASTATIN [Concomitant]
     Active Substance: ROSUVASTATIN
     Indication: Product used for unknown indication
  8. ROSUVASTATIN [Concomitant]
     Active Substance: ROSUVASTATIN
  9. ROSUVASTATIN [Concomitant]
     Active Substance: ROSUVASTATIN
  10. PRANLUKAST [Concomitant]
     Active Substance: PRANLUKAST
     Indication: Product used for unknown indication
  11. PRANLUKAST [Concomitant]
     Active Substance: PRANLUKAST
  12. PRANLUKAST [Concomitant]
     Active Substance: PRANLUKAST
  13. THEOPHYLLINE [Concomitant]
     Active Substance: THEOPHYLLINE
     Indication: Product used for unknown indication
  14. THEOPHYLLINE [Concomitant]
     Active Substance: THEOPHYLLINE
  15. THEOPHYLLINE [Concomitant]
     Active Substance: THEOPHYLLINE
  16. FLUTICASONE PROPIONATE\SALMETEROL XINAFOATE [Concomitant]
     Active Substance: FLUTICASONE PROPIONATE\SALMETEROL XINAFOATE
     Indication: Product used for unknown indication
     Route: 055
  17. FLUTICASONE PROPIONATE\SALMETEROL XINAFOATE [Concomitant]
     Active Substance: FLUTICASONE PROPIONATE\SALMETEROL XINAFOATE
     Route: 055
  18. FLUTICASONE PROPIONATE\SALMETEROL XINAFOATE [Concomitant]
     Active Substance: FLUTICASONE PROPIONATE\SALMETEROL XINAFOATE
  19. SULFASALAZINE [Concomitant]
     Active Substance: SULFASALAZINE
     Indication: Product used for unknown indication
  20. SULFASALAZINE [Concomitant]
     Active Substance: SULFASALAZINE
  21. SULFASALAZINE [Concomitant]
     Active Substance: SULFASALAZINE
  22. AMLODIPINE [Concomitant]
     Active Substance: AMLODIPINE BESYLATE
     Indication: Product used for unknown indication
     Route: 048
  23. AMLODIPINE [Concomitant]
     Active Substance: AMLODIPINE BESYLATE
     Route: 048
  24. AMLODIPINE [Concomitant]
     Active Substance: AMLODIPINE BESYLATE
  25. UREA [Concomitant]
     Active Substance: UREA
     Indication: Product used for unknown indication
     Route: 061
  26. UREA [Concomitant]
     Active Substance: UREA
     Route: 061
  27. UREA [Concomitant]
     Active Substance: UREA
  28. CLOBETASONE BUTYRATE [Concomitant]
     Active Substance: CLOBETASONE BUTYRATE
     Indication: Product used for unknown indication
     Route: 061
  29. CLOBETASONE BUTYRATE [Concomitant]
     Active Substance: CLOBETASONE BUTYRATE
     Route: 061
  30. CLOBETASONE BUTYRATE [Concomitant]
     Active Substance: CLOBETASONE BUTYRATE
  31. FLUOROMETHOLONE [Concomitant]
     Active Substance: FLUOROMETHOLONE
     Indication: Product used for unknown indication
     Route: 047
  32. FLUOROMETHOLONE [Concomitant]
     Active Substance: FLUOROMETHOLONE
     Route: 047
  33. FLUOROMETHOLONE [Concomitant]
     Active Substance: FLUOROMETHOLONE
  34. PIRENOXINE [Concomitant]
     Active Substance: PIRENOXINE
     Indication: Product used for unknown indication
     Route: 047
  35. PIRENOXINE [Concomitant]
     Active Substance: PIRENOXINE
     Route: 047
  36. PIRENOXINE [Concomitant]
     Active Substance: PIRENOXINE
  37. TRAMELAS [Concomitant]
     Indication: Product used for unknown indication
     Route: 047
  38. TRAMELAS [Concomitant]
     Route: 047
  39. TRAMELAS [Concomitant]
  40. DERMOSOL-G [Concomitant]
     Route: 061
  41. AZULFIDINE EN-TABS [Concomitant]
     Active Substance: SULFASALAZINE
     Indication: Endometrial cancer
     Route: 048

REACTIONS (3)
  - Cytokine release syndrome [Recovered/Resolved]
  - Enterocolitis [Recovering/Resolving]
  - Acute kidney injury [Recovering/Resolving]

NARRATIVE: CASE EVENT DATE: 20230530
